FAERS Safety Report 14872336 (Version 1)
Quarter: 2018Q2

REPORT INFORMATION
  Report Type: Spontaneous
  Country: FR (occurrence: FR)
  Receive Date: 20180509
  Receipt Date: 20180509
  Transmission Date: 20180711
  Serious: Yes (Other)
  Sender: FDA-Public Use
  Company Number: FR-BRISTOL-MYERS SQUIBB COMPANY-BMS-2018-039141

PATIENT
  Age: 29 Year
  Sex: Male

DRUGS (6)
  1. HYDREA [Suspect]
     Active Substance: HYDROXYUREA
     Indication: HYPEREOSINOPHILIC SYNDROME
     Dosage: 1500 MG, QD
     Route: 065
  2. ETOPOSIDE. [Suspect]
     Active Substance: ETOPOSIDE
     Indication: HYPEREOSINOPHILIC SYNDROME
     Dosage: 150 MG, DAY 1 AND DAY 15 MONTHLY
     Route: 065
  3. CYTARABINE. [Suspect]
     Active Substance: CYTARABINE
     Indication: HYPEREOSINOPHILIC SYNDROME
     Dosage: 20 MG/M2, QD
     Route: 065
  4. INTERFERON ALFA NOS [Suspect]
     Active Substance: INTERFERON ALFA-2A OR INTERFERON ALFA-2B
     Indication: HYPEREOSINOPHILIC SYNDROME
     Dosage: 1 DF = 5 MUI/DAY, QD
     Route: 065
  5. THIOTEPA. [Suspect]
     Active Substance: THIOTEPA
     Indication: HYPEREOSINOPHILIC SYNDROME
     Dosage: 100 MG, DAY 1 AND DAY 15 MONTHLY
     Route: 065
  6. PREDNISONE. [Suspect]
     Active Substance: PREDNISONE
     Indication: HYPEREOSINOPHILIC SYNDROME
     Dosage: 40 MG, QD
     Route: 065

REACTIONS (1)
  - Treatment failure [Unknown]
